FAERS Safety Report 19557362 (Version 23)
Quarter: 2024Q3

REPORT INFORMATION
  Report Type: Spontaneous
  Country: CA (occurrence: CA)
  Receive Date: 20210715
  Receipt Date: 20240927
  Transmission Date: 20241017
  Serious: Yes (Hospitalization, Other)
  Sender: PURDUE
  Company Number: CA-NAPPMUNDI-GBR-2021-0088753

PATIENT
  Age: 78 Year
  Sex: Female
  Weight: 93 kg

DRUGS (285)
  1. MORPHINE SULFATE [Suspect]
     Active Substance: MORPHINE SULFATE
     Indication: Product used for unknown indication
     Dosage: UNK
     Route: 065
  2. MORPHINE SULFATE [Suspect]
     Active Substance: MORPHINE SULFATE
     Indication: Dyspnoea
     Dosage: 10 MILLIGRAM
     Route: 048
  3. MORPHINE SULFATE [Suspect]
     Active Substance: MORPHINE SULFATE
     Dosage: UNK
     Route: 065
  4. MORPHINE SULFATE [Suspect]
     Active Substance: MORPHINE SULFATE
     Dosage: 10 MILLIGRAM, UNK
     Route: 048
  5. MORPHINE SULFATE [Suspect]
     Active Substance: MORPHINE SULFATE
     Dosage: UNK
     Route: 048
  6. MORPHINE SULFATE [Suspect]
     Active Substance: MORPHINE SULFATE
     Dosage: 10 MILLIGRAM, UNK
     Route: 048
  7. MORPHINE SULFATE [Suspect]
     Active Substance: MORPHINE SULFATE
     Dosage: 10 MILLIGRAM
     Route: 048
  8. MORPHINE SULFATE [Suspect]
     Active Substance: MORPHINE SULFATE
     Dosage: 10 MILLIGRAM, UNK
     Route: 048
  9. MORPHINE SULFATE [Suspect]
     Active Substance: MORPHINE SULFATE
     Dosage: 10 MILLIGRAM, UNK
     Route: 048
  10. MORPHINE SULFATE [Suspect]
     Active Substance: MORPHINE SULFATE
     Dosage: 10 MILLIGRAM (DOSAGE REGIMEN WAS REPORTED 7 TIMES)
     Route: 065
  11. MORPHINE SULFATE [Suspect]
     Active Substance: MORPHINE SULFATE
     Dosage: 10 MILLIGRAM, 1 EVERY 1 DAYS
     Route: 048
  12. SENOKOT [Suspect]
     Active Substance: SENNOSIDES
     Indication: Product used for unknown indication
     Dosage: UNK
     Route: 048
  13. SENOKOT [Suspect]
     Active Substance: SENNOSIDES
     Indication: Constipation
     Dosage: UNK
     Route: 048
  14. SENOKOT [Suspect]
     Active Substance: SENNOSIDES
     Dosage: UNK
     Route: 065
  15. SENOKOT [Suspect]
     Active Substance: SENNOSIDES
     Dosage: UNK
     Route: 065
  16. SENOKOT [Suspect]
     Active Substance: SENNOSIDES
     Dosage: 8.6 MILLIGRAM
     Route: 048
  17. SENOKOT [Suspect]
     Active Substance: SENNOSIDES
     Dosage: 86 MILLIGRAM
     Route: 065
  18. SENOKOT [Suspect]
     Active Substance: SENNOSIDES
     Dosage: 9 MILLIGRAM
     Route: 048
  19. SENOKOT [Suspect]
     Active Substance: SENNOSIDES
     Dosage: 9 MILLIGRAM
     Route: 065
  20. SENNOSIDES A AND B [Suspect]
     Active Substance: SENNOSIDES A AND B
     Indication: Product used for unknown indication
     Dosage: 8.6 MG, UNK
     Route: 065
  21. SENNOSIDES A AND B [Suspect]
     Active Substance: SENNOSIDES A AND B
     Dosage: 8.6 MG, UNK
     Route: 065
  22. SENNOSIDES A AND B [Suspect]
     Active Substance: SENNOSIDES A AND B
     Dosage: 9 MILLIGRAM
     Route: 065
  23. SENNOSIDES A AND B [Suspect]
     Active Substance: SENNOSIDES A AND B
     Dosage: UNK
     Route: 065
  24. SENNOSIDES A AND B [Suspect]
     Active Substance: SENNOSIDES A AND B
     Dosage: 86 MILLIGRAM
     Route: 065
  25. SENNOSIDES A AND B [Suspect]
     Active Substance: SENNOSIDES A AND B
     Dosage: 9 MILLIGRAM
     Route: 048
  26. SENNOSIDES A AND B [Suspect]
     Active Substance: SENNOSIDES A AND B
     Dosage: 8.6 MILLIGRAM
     Route: 048
  27. ACETAMINOPHEN [Suspect]
     Active Substance: ACETAMINOPHEN
     Indication: Product used for unknown indication
     Dosage: 1000 MG, UNK
     Route: 065
  28. ACETAMINOPHEN [Suspect]
     Active Substance: ACETAMINOPHEN
     Dosage: 1000 MG
     Route: 065
  29. ACETAMINOPHEN [Suspect]
     Active Substance: ACETAMINOPHEN
     Dosage: UNK (DOSAGE REGIMEN WAS REPORTED 6 TIMES)
     Route: 065
  30. ATROVENT [Suspect]
     Active Substance: IPRATROPIUM BROMIDE
     Indication: Product used for unknown indication
     Dosage: UNK
     Route: 065
  31. ATROVENT [Suspect]
     Active Substance: IPRATROPIUM BROMIDE
     Dosage: UNK
     Route: 065
  32. AZITHROMYCIN [Suspect]
     Active Substance: AZITHROMYCIN
     Indication: Product used for unknown indication
     Dosage: UNK
     Route: 065
  33. AZITHROMYCIN [Suspect]
     Active Substance: AZITHROMYCIN
     Dosage: UNK
     Route: 065
  34. BUDESONIDE [Suspect]
     Active Substance: BUDESONIDE
     Indication: Product used for unknown indication
     Dosage: UNK
     Route: 065
  35. BUDESONIDE [Suspect]
     Active Substance: BUDESONIDE
     Dosage: UNK
     Route: 065
  36. BUDESONIDE [Suspect]
     Active Substance: BUDESONIDE
     Dosage: UNK
  37. BUDESONIDE [Suspect]
     Active Substance: BUDESONIDE
     Dosage: UNK
  38. BUDESONIDE\FORMOTEROL FUMARATE [Suspect]
     Active Substance: BUDESONIDE\FORMOTEROL FUMARATE
     Indication: Product used for unknown indication
     Dosage: 2 DOSAGE FORM, Q12H
     Route: 065
  39. BUDESONIDE\FORMOTEROL FUMARATE [Suspect]
     Active Substance: BUDESONIDE\FORMOTEROL FUMARATE
     Dosage: 2 DOSAGE FORM, BID (2 EVERY 1 DAYS)
     Route: 055
  40. BUDESONIDE\FORMOTEROL FUMARATE [Suspect]
     Active Substance: BUDESONIDE\FORMOTEROL FUMARATE
     Dosage: 4 DOSAGE FORM, DAILY(1 EVERY 1 DAYS)
     Route: 065
  41. BUDESONIDE\FORMOTEROL FUMARATE [Suspect]
     Active Substance: BUDESONIDE\FORMOTEROL FUMARATE
     Dosage: UNK
     Route: 055
  42. BUDESONIDE\FORMOTEROL FUMARATE [Suspect]
     Active Substance: BUDESONIDE\FORMOTEROL FUMARATE
     Dosage: UNK, BID
     Route: 065
  43. BUDESONIDE\FORMOTEROL FUMARATE [Suspect]
     Active Substance: BUDESONIDE\FORMOTEROL FUMARATE
     Dosage: UNK, DAILY (1 EVERY 1 DAYS)
     Route: 065
  44. BUDESONIDE\FORMOTEROL FUMARATE [Suspect]
     Active Substance: BUDESONIDE\FORMOTEROL FUMARATE
     Dosage: UNK, Q12H (EVERY 12 HOURS)
     Route: 055
  45. BUDESONIDE\FORMOTEROL FUMARATE [Suspect]
     Active Substance: BUDESONIDE\FORMOTEROL FUMARATE
     Dosage: 2 EVERY 1 DAYS (DOSAGE REGIMEN WAS REPORTED 2 TIMES)
     Route: 055
  46. BUDESONIDE\FORMOTEROL FUMARATE [Suspect]
     Active Substance: BUDESONIDE\FORMOTEROL FUMARATE
     Dosage: EVERY 12 HOURS
     Route: 055
  47. BUDESONIDE\FORMOTEROL FUMARATE [Suspect]
     Active Substance: BUDESONIDE\FORMOTEROL FUMARATE
     Dosage: 1 EVERY 1 DAYS
     Route: 065
  48. BUDESONIDE\FORMOTEROL FUMARATE [Suspect]
     Active Substance: BUDESONIDE\FORMOTEROL FUMARATE
     Dosage: 1 DOSAGE FORM, 1 EVERY 1 DAYS
     Route: 065
  49. BUDESONIDE\FORMOTEROL FUMARATE [Suspect]
     Active Substance: BUDESONIDE\FORMOTEROL FUMARATE
     Dosage: 1 DOSAGE FORM, 2 EVERY 1 DAYS
     Route: 065
  50. CANDESARTAN CILEXETIL [Suspect]
     Active Substance: CANDESARTAN CILEXETIL
     Indication: Product used for unknown indication
     Dosage: 8 MG, DAILY (1 EVERY 1 DAYS)
     Route: 048
  51. CANDESARTAN CILEXETIL [Suspect]
     Active Substance: CANDESARTAN CILEXETIL
     Dosage: UNK
     Route: 048
  52. CANDESARTAN CILEXETIL [Suspect]
     Active Substance: CANDESARTAN CILEXETIL
     Dosage: 80 MILLIGRAM 1 EVERY 1 DAYS
     Route: 048
  53. DEXILANT [Suspect]
     Active Substance: DEXLANSOPRAZOLE
     Indication: Product used for unknown indication
     Dosage: UNK
     Route: 065
  54. DEXILANT [Suspect]
     Active Substance: DEXLANSOPRAZOLE
     Indication: Gastrooesophageal reflux disease
  55. DOMPERIDONE [Suspect]
     Active Substance: DOMPERIDONE
     Indication: Product used for unknown indication
     Dosage: UNK
     Route: 048
  56. DOMPERIDONE [Suspect]
     Active Substance: DOMPERIDONE
     Dosage: UNK
     Route: 065
  57. DOMPERIDONE [Suspect]
     Active Substance: DOMPERIDONE
     Dosage: UNK
     Route: 065
  58. EFINACONAZOLE [Suspect]
     Active Substance: EFINACONAZOLE
     Indication: Product used for unknown indication
     Dosage: UNK
     Route: 065
  59. EFINACONAZOLE [Suspect]
     Active Substance: EFINACONAZOLE
     Dosage: UNK
     Route: 061
  60. EFINACONAZOLE [Suspect]
     Active Substance: EFINACONAZOLE
     Dosage: 10 PERCENT
     Route: 061
  61. NITROGLYCERIN [Suspect]
     Active Substance: NITROGLYCERIN
     Indication: Product used for unknown indication
     Dosage: UNK
     Route: 065
  62. NITROGLYCERIN [Suspect]
     Active Substance: NITROGLYCERIN
     Dosage: UNK
     Route: 065
  63. NITROGLYCERIN [Suspect]
     Active Substance: NITROGLYCERIN
     Dosage: UNK
     Route: 062
  64. INFLUENZA VIRUS VACCINE [Suspect]
     Active Substance: INFLUENZA VIRUS VACCINE
     Indication: Prophylaxis
     Dosage: UNK (TOTAL)
     Route: 065
  65. INFLUENZA VIRUS VACCINE [Suspect]
     Active Substance: INFLUENZA VIRUS VACCINE
     Indication: Immunisation
     Dosage: UNK (TOTAL)
     Route: 065
  66. INFLUENZA VIRUS VACCINE [Suspect]
     Active Substance: INFLUENZA VIRUS VACCINE
     Dosage: UNK (TOTAL)
     Route: 065
  67. INFLUENZA VIRUS VACCINE [Suspect]
     Active Substance: INFLUENZA VIRUS VACCINE
     Dosage: UNK (TOTAL)
     Route: 065
  68. INFLUENZA VIRUS VACCINE [Suspect]
     Active Substance: INFLUENZA VIRUS VACCINE
     Dosage: UNK (DOSAGE REGIMEN WAS REPORTED 9 TIMES)
     Route: 065
  69. LANSOPRAZOLE [Suspect]
     Active Substance: LANSOPRAZOLE
     Indication: Product used for unknown indication
     Dosage: UNK
     Route: 065
  70. LANSOPRAZOLE [Suspect]
     Active Substance: LANSOPRAZOLE
     Indication: Gastrooesophageal reflux disease
     Dosage: UNK
     Route: 048
  71. LEVOTHYROXINE SODIUM [Suspect]
     Active Substance: LEVOTHYROXINE SODIUM
     Indication: Product used for unknown indication
     Dosage: UNK
     Route: 065
  72. LEVOTHYROXINE SODIUM [Suspect]
     Active Substance: LEVOTHYROXINE SODIUM
     Dosage: UNK
     Route: 065
  73. MEPOLIZUMAB [Suspect]
     Active Substance: MEPOLIZUMAB
     Indication: Asthma
     Dosage: 100 MG, UNK
     Route: 042
  74. MEPOLIZUMAB [Suspect]
     Active Substance: MEPOLIZUMAB
     Dosage: 100 MG, UNK
     Route: 042
  75. MEPOLIZUMAB [Suspect]
     Active Substance: MEPOLIZUMAB
     Dosage: 100 MG, UNK
     Route: 065
  76. MEPOLIZUMAB [Suspect]
     Active Substance: MEPOLIZUMAB
     Dosage: 100 MG, UNK
     Route: 042
  77. MEPOLIZUMAB [Suspect]
     Active Substance: MEPOLIZUMAB
     Dosage: 100 MG, UNK
     Route: 042
  78. MEPOLIZUMAB [Suspect]
     Active Substance: MEPOLIZUMAB
     Dosage: 100 MG, UNK
     Route: 042
  79. MEPOLIZUMAB [Suspect]
     Active Substance: MEPOLIZUMAB
     Dosage: 100 MG, UNK
     Route: 065
  80. MEPOLIZUMAB [Suspect]
     Active Substance: MEPOLIZUMAB
     Dosage: 100 MG, UNK
     Route: 058
  81. MEPOLIZUMAB [Suspect]
     Active Substance: MEPOLIZUMAB
     Dosage: 100 MILLIGRAM, MONTHLY [1 EVERY 1 MONTHS (REPORTED 3 TIMES)] (DOSAGE REGIMEN WAS REPORTED 7 TIMES)
     Route: 042
  82. MEPOLIZUMAB [Suspect]
     Active Substance: MEPOLIZUMAB
     Dosage: 1000 MILLIGRAM
     Route: 042
  83. MEPOLIZUMAB [Suspect]
     Active Substance: MEPOLIZUMAB
     Dosage: UNK
     Route: 042
  84. MONTELUKAST [Suspect]
     Active Substance: MONTELUKAST SODIUM
     Indication: Product used for unknown indication
     Dosage: 10 MG, DAILY
     Route: 048
  85. MONTELUKAST [Suspect]
     Active Substance: MONTELUKAST SODIUM
     Dosage: UNK
     Route: 048
  86. MONTELUKAST [Suspect]
     Active Substance: MONTELUKAST SODIUM
     Dosage: 10 MG, DAILY
     Route: 048
  87. MONTELUKAST [Suspect]
     Active Substance: MONTELUKAST SODIUM
     Dosage: 10 MG, DAILY (1 EVERY 1 DAYS)
     Route: 048
  88. MONTELUKAST [Suspect]
     Active Substance: MONTELUKAST SODIUM
     Dosage: 10 MG, DAILY
     Route: 048
  89. MONTELUKAST [Suspect]
     Active Substance: MONTELUKAST SODIUM
     Dosage: UNK
     Route: 048
  90. MONTELUKAST [Suspect]
     Active Substance: MONTELUKAST SODIUM
     Dosage: 10 MG, DAILY (1 EVERY 1 DAYS)
     Route: 048
  91. MONTELUKAST SODIUM [Suspect]
     Active Substance: MONTELUKAST\MONTELUKAST SODIUM
     Indication: Product used for unknown indication
     Dosage: 10 MG, DAILY (1 EVERY 1 DAYS)
     Route: 048
  92. MONTELUKAST SODIUM [Suspect]
     Active Substance: MONTELUKAST\MONTELUKAST SODIUM
     Indication: Asthma
     Dosage: UNK, DAILY
     Route: 065
  93. MONTELUKAST SODIUM [Suspect]
     Active Substance: MONTELUKAST\MONTELUKAST SODIUM
     Dosage: 10 MG, DAILY (1 EVERY 1 DAYS)
     Route: 048
  94. MONTELUKAST SODIUM [Suspect]
     Active Substance: MONTELUKAST\MONTELUKAST SODIUM
     Dosage: 10 MG, DAILY (1 EVERY 1 DAYS)
     Route: 048
  95. MONTELUKAST SODIUM [Suspect]
     Active Substance: MONTELUKAST\MONTELUKAST SODIUM
     Dosage: UNK
     Route: 048
  96. MONTELUKAST SODIUM [Suspect]
     Active Substance: MONTELUKAST\MONTELUKAST SODIUM
     Dosage: 100 MILLIGRAM
     Route: 048
  97. MONTELUKAST SODIUM [Suspect]
     Active Substance: MONTELUKAST\MONTELUKAST SODIUM
     Dosage: 10 MILLIGRAM
     Route: 048
  98. MONTELUKAST SODIUM [Suspect]
     Active Substance: MONTELUKAST\MONTELUKAST SODIUM
     Dosage: 10 MILLIGRAM
     Route: 065
  99. MORPHINE HYDROCHLORIDE [Suspect]
     Active Substance: MORPHINE HYDROCHLORIDE
     Indication: Product used for unknown indication
     Dosage: 10 MG, UNK
     Route: 048
  100. MORPHINE HYDROCHLORIDE [Suspect]
     Active Substance: MORPHINE HYDROCHLORIDE
     Dosage: UNK
     Route: 065
  101. MORPHINE HYDROCHLORIDE [Suspect]
     Active Substance: MORPHINE HYDROCHLORIDE
     Dosage: UNK
     Route: 065
  102. MORPHINE HYDROCHLORIDE [Suspect]
     Active Substance: MORPHINE HYDROCHLORIDE
     Dosage: 10 MG, UNK
     Route: 048
  103. MORPHINE HYDROCHLORIDE [Suspect]
     Active Substance: MORPHINE HYDROCHLORIDE
     Dosage: 10 MG, UNK
     Route: 048
  104. MORPHINE HYDROCHLORIDE [Suspect]
     Active Substance: MORPHINE HYDROCHLORIDE
     Dosage: 10 MG, UNK
     Route: 048
  105. MORPHINE HYDROCHLORIDE [Suspect]
     Active Substance: MORPHINE HYDROCHLORIDE
     Dosage: 10 MG, UNK
     Route: 048
  106. MORPHINE HYDROCHLORIDE [Suspect]
     Active Substance: MORPHINE HYDROCHLORIDE
     Dosage: UNK
     Route: 048
  107. NASONEX [Suspect]
     Active Substance: MOMETASONE FUROATE
     Indication: Product used for unknown indication
     Dosage: 2 DOSAGE FORM, BID
     Route: 065
  108. NASONEX [Suspect]
     Active Substance: MOMETASONE FUROATE
     Indication: Asthma
     Dosage: UNK
     Route: 065
  109. NASONEX [Suspect]
     Active Substance: MOMETASONE FUROATE
     Dosage: UNK (INTRA-NASAL)
     Route: 045
  110. NASONEX [Suspect]
     Active Substance: MOMETASONE FUROATE
     Dosage: 100 MILLIGRAM
     Route: 065
  111. NITROGLYCERIN [Suspect]
     Active Substance: NITROGLYCERIN
     Indication: Product used for unknown indication
     Dosage: UNK
     Route: 065
  112. NITROGLYCERIN [Suspect]
     Active Substance: NITROGLYCERIN
     Dosage: UNK
     Route: 062
  113. NITROGLYCERIN [Suspect]
     Active Substance: NITROGLYCERIN
     Dosage: UNK (DOSAGE REGIMEN WAS REPORTED 3 TIMES)
     Route: 065
  114. OMALIZUMAB [Suspect]
     Active Substance: OMALIZUMAB
     Indication: Product used for unknown indication
     Dosage: UNK
     Route: 065
  115. OMALIZUMAB [Suspect]
     Active Substance: OMALIZUMAB
     Indication: Asthma
     Dosage: UNK
     Route: 065
  116. OMALIZUMAB [Suspect]
     Active Substance: OMALIZUMAB
     Dosage: UNK
     Route: 065
  117. OMALIZUMAB [Suspect]
     Active Substance: OMALIZUMAB
     Dosage: UNK
     Route: 065
  118. OMALIZUMAB [Suspect]
     Active Substance: OMALIZUMAB
     Dosage: UNK
     Route: 065
  119. OMALIZUMAB [Suspect]
     Active Substance: OMALIZUMAB
     Dosage: UNK
     Route: 065
  120. OMALIZUMAB [Suspect]
     Active Substance: OMALIZUMAB
     Dosage: UNK
     Route: 065
  121. OMALIZUMAB [Suspect]
     Active Substance: OMALIZUMAB
     Dosage: UNK
     Route: 065
  122. OMALIZUMAB [Suspect]
     Active Substance: OMALIZUMAB
     Dosage: UNK
     Route: 065
  123. PANTOPRAZOLE SODIUM [Suspect]
     Active Substance: PANTOPRAZOLE SODIUM
     Indication: Product used for unknown indication
     Dosage: UNK
     Route: 065
  124. PANTOPRAZOLE SODIUM [Suspect]
     Active Substance: PANTOPRAZOLE SODIUM
     Dosage: UNK
     Route: 065
  125. PANTOPRAZOLE SODIUM [Suspect]
     Active Substance: PANTOPRAZOLE SODIUM
     Dosage: UNK
     Route: 065
  126. PRAMIPEXOLE DIHYDROCHLORIDE [Suspect]
     Active Substance: PRAMIPEXOLE DIHYDROCHLORIDE
     Indication: Product used for unknown indication
     Dosage: 0.25 MG, UNK
     Route: 048
  127. PRAMIPEXOLE DIHYDROCHLORIDE [Suspect]
     Active Substance: PRAMIPEXOLE DIHYDROCHLORIDE
     Dosage: 0.5 MG, UNK
     Route: 048
  128. PRAMIPEXOLE DIHYDROCHLORIDE [Suspect]
     Active Substance: PRAMIPEXOLE DIHYDROCHLORIDE
     Dosage: 0.5 MG, UNK
     Route: 048
  129. PRAMIPEXOLE DIHYDROCHLORIDE [Suspect]
     Active Substance: PRAMIPEXOLE DIHYDROCHLORIDE
     Dosage: UNK  (ORAL WAS REPORTED 3 TIMES)
     Route: 065
  130. PRAMIPEXOLE DIHYDROCHLORIDE [Suspect]
     Active Substance: PRAMIPEXOLE DIHYDROCHLORIDE
     Dosage: UNK
     Route: 065
  131. PREGABALIN [Suspect]
     Active Substance: PREGABALIN
     Indication: Product used for unknown indication
     Dosage: 75 MG, UNK
     Route: 048
  132. PREGABALIN [Suspect]
     Active Substance: PREGABALIN
     Dosage: UNK
     Route: 048
  133. PREGABALIN [Suspect]
     Active Substance: PREGABALIN
     Dosage: 75 MG, UNK
     Route: 048
  134. PREGABALIN [Suspect]
     Active Substance: PREGABALIN
     Dosage: 75 MG, UNK
     Route: 048
  135. PREGABALIN [Suspect]
     Active Substance: PREGABALIN
     Dosage: UNK
     Route: 065
  136. QUETIAPINE FUMARATE [Suspect]
     Active Substance: QUETIAPINE FUMARATE
     Indication: Product used for unknown indication
     Dosage: UNK
     Route: 065
  137. QUETIAPINE FUMARATE [Suspect]
     Active Substance: QUETIAPINE FUMARATE
     Dosage: UNK
     Route: 048
  138. QUETIAPINE FUMARATE [Suspect]
     Active Substance: QUETIAPINE FUMARATE
     Dosage: 86 MILLIGRAM
     Route: 065
  139. QUETIAPINE FUMARATE [Suspect]
     Active Substance: QUETIAPINE FUMARATE
     Dosage: UNK
     Route: 065
  140. QUETIAPINE FUMARATE [Suspect]
     Active Substance: QUETIAPINE FUMARATE
     Dosage: 86 MILLIGRAM
     Route: 048
  141. PREVNAR 13 [Suspect]
     Active Substance: STREPTOCOCCUS PNEUMONIAE TYPE 1 CAPSULAR POLYSACCHARIDE DIPHTHERIA CRM197 PROTEIN CONJUGATE ANTIGEN\
     Indication: Immunisation
     Dosage: UNK
     Route: 030
  142. PREVNAR 13 [Suspect]
     Active Substance: STREPTOCOCCUS PNEUMONIAE TYPE 1 CAPSULAR POLYSACCHARIDE DIPHTHERIA CRM197 PROTEIN CONJUGATE ANTIGEN\
     Dosage: UNK
     Route: 065
  143. PREVNAR 13 [Suspect]
     Active Substance: STREPTOCOCCUS PNEUMONIAE TYPE 1 CAPSULAR POLYSACCHARIDE DIPHTHERIA CRM197 PROTEIN CONJUGATE ANTIGEN\
     Dosage: 1 EVERY 1 DAY
     Route: 030
  144. PREVNAR 13 [Suspect]
     Active Substance: STREPTOCOCCUS PNEUMONIAE TYPE 1 CAPSULAR POLYSACCHARIDE DIPHTHERIA CRM197 PROTEIN CONJUGATE ANTIGEN\
     Dosage: 1 EVERY 1 DAY
     Route: 065
  145. PREVNAR 13 [Suspect]
     Active Substance: STREPTOCOCCUS PNEUMONIAE TYPE 1 CAPSULAR POLYSACCHARIDE DIPHTHERIA CRM197 PROTEIN CONJUGATE ANTIGEN\
     Dosage: 1 DOSAGE FORM, 1 EVERY 1 DAYS
     Route: 030
  146. RANITIDINE [Suspect]
     Active Substance: RANITIDINE
     Indication: Influenza
     Dosage: UNK
     Route: 065
  147. RANITIDINE [Suspect]
     Active Substance: RANITIDINE
     Indication: Gastrooesophageal reflux disease
  148. RANITIDINE [Suspect]
     Active Substance: RANITIDINE
     Indication: Product used for unknown indication
  149. ROSUVASTATIN CALCIUM [Suspect]
     Active Substance: ROSUVASTATIN CALCIUM
     Indication: Product used for unknown indication
     Dosage: UNK
     Route: 065
  150. ROSUVASTATIN CALCIUM [Suspect]
     Active Substance: ROSUVASTATIN CALCIUM
     Dosage: UNK
     Route: 048
  151. ROSUVASTATIN CALCIUM [Suspect]
     Active Substance: ROSUVASTATIN CALCIUM
     Dosage: 86 MILLIGRAM
     Route: 065
  152. ROSUVASTATIN CALCIUM [Suspect]
     Active Substance: ROSUVASTATIN CALCIUM
     Dosage: 86 MILLIGRAM
     Route: 048
  153. RISEDRONATE SODIUM [Suspect]
     Active Substance: RISEDRONATE SODIUM
     Indication: Product used for unknown indication
     Dosage: UNK
     Route: 065
  154. RISEDRONATE SODIUM [Suspect]
     Active Substance: RISEDRONATE SODIUM
     Dosage: UNK
     Route: 065
  155. RISEDRONATE SODIUM [Suspect]
     Active Substance: RISEDRONATE SODIUM
     Indication: Product used for unknown indication
     Dosage: UNK
     Route: 048
  156. RISEDRONATE SODIUM [Suspect]
     Active Substance: RISEDRONATE SODIUM
     Dosage: UNK
     Route: 065
  157. SINGULAIR [Suspect]
     Active Substance: MONTELUKAST SODIUM
     Indication: Product used for unknown indication
     Dosage: 100 MILLIGRAM, DAILY (1 EVERY 1 DAYS)
     Route: 065
  158. SINGULAIR [Suspect]
     Active Substance: MONTELUKAST SODIUM
     Indication: Asthma
     Dosage: UNK
     Route: 065
  159. SINGULAIR [Suspect]
     Active Substance: MONTELUKAST SODIUM
     Dosage: 10 MG, DAILY (1 EVERY 1 DAYS)
     Route: 048
  160. SINGULAIR [Suspect]
     Active Substance: MONTELUKAST SODIUM
     Dosage: UNK
     Route: 065
  161. SINGULAIR [Suspect]
     Active Substance: MONTELUKAST SODIUM
     Dosage: 100 MILLIGRAM, DAILY (1 EVERY 1 DAYS)
     Route: 048
  162. SPIRIVA [Suspect]
     Active Substance: TIOTROPIUM BROMIDE MONOHYDRATE
     Indication: Product used for unknown indication
     Dosage: UNK, DAILY (1 EVERY 1 DAYS)
     Route: 065
  163. SPIRIVA [Suspect]
     Active Substance: TIOTROPIUM BROMIDE MONOHYDRATE
     Dosage: 1 DOSAGE FORM, DAILY (1 EVERY 1 DAYS)
     Route: 065
  164. SPIRIVA [Suspect]
     Active Substance: TIOTROPIUM BROMIDE MONOHYDRATE
     Dosage: UNKNOWN (DOSAGE REGIMEN WAS REPORTED 3 TIMES)
     Route: 065
  165. SYNTHROID [Suspect]
     Active Substance: LEVOTHYROXINE SODIUM
     Indication: Product used for unknown indication
     Dosage: UNK
     Route: 065
  166. SYNTHROID [Suspect]
     Active Substance: LEVOTHYROXINE SODIUM
     Dosage: UNK
     Route: 065
  167. TRAZODONE HYDROCHLORIDE [Suspect]
     Active Substance: TRAZODONE HYDROCHLORIDE
     Indication: Product used for unknown indication
     Dosage: 10 MG, UNK
     Route: 065
  168. TRAZODONE HYDROCHLORIDE [Suspect]
     Active Substance: TRAZODONE HYDROCHLORIDE
     Dosage: 12.5 MG, UNK
     Route: 065
  169. TRAZODONE HYDROCHLORIDE [Suspect]
     Active Substance: TRAZODONE HYDROCHLORIDE
     Dosage: 10 MG, UNK
     Route: 065
  170. TRAZODONE HYDROCHLORIDE [Suspect]
     Active Substance: TRAZODONE HYDROCHLORIDE
     Dosage: 13 MG
     Route: 048
  171. ERGOCALCIFEROL [Suspect]
     Active Substance: ERGOCALCIFEROL
     Indication: Product used for unknown indication
     Dosage: UNK
     Route: 048
  172. ZOPICLONE [Suspect]
     Active Substance: ZOPICLONE
     Indication: Product used for unknown indication
     Dosage: UNK
     Route: 048
  173. ZOPICLONE [Suspect]
     Active Substance: ZOPICLONE
     Dosage: UNK
     Route: 065
  174. MORPHINE SULFATE [Suspect]
     Active Substance: MORPHINE SULFATE
     Indication: Product used for unknown indication
     Dosage: 10 MG, UNK
     Route: 048
  175. PNEUMOCOCCAL 13-VALENT CONJUGATE VACCINE [Suspect]
     Active Substance: PNEUMOCOCCAL 13-VALENT CONJUGATE VACCINE
     Indication: Immunisation
     Dosage: UNK
     Route: 065
  176. PNEUMOCOCCAL 13-VALENT CONJUGATE VACCINE [Suspect]
     Active Substance: PNEUMOCOCCAL 13-VALENT CONJUGATE VACCINE
     Dosage: UNK
     Route: 030
  177. PNEUMOCOCCAL 13-VALENT CONJUGATE VACCINE [Suspect]
     Active Substance: PNEUMOCOCCAL 13-VALENT CONJUGATE VACCINE
     Dosage: UNK
     Route: 065
  178. ALBUTEROL [Suspect]
     Active Substance: ALBUTEROL
     Indication: Asthma
     Dosage: 100 MCG
     Route: 065
  179. ALBUTEROL [Suspect]
     Active Substance: ALBUTEROL
     Dosage: UNK
     Route: 065
  180. ALBUTEROL [Suspect]
     Active Substance: ALBUTEROL
     Dosage: 100 MCG, UNK
     Route: 065
  181. ALBUTEROL [Suspect]
     Active Substance: ALBUTEROL
     Dosage: 100 MILLIGRAM
     Route: 065
  182. ALBUTEROL [Suspect]
     Active Substance: ALBUTEROL
     Dosage: UNK (DOSAGE REGIMEN WAS REPORTED 2 TIMES)
     Route: 065
  183. SENNA LEAF [Suspect]
     Active Substance: SENNA LEAF
     Indication: Product used for unknown indication
     Dosage: UNK
     Route: 065
  184. SENNA LEAF [Suspect]
     Active Substance: SENNA LEAF
     Dosage: UNK
     Route: 048
  185. TIOTROPIUM BROMIDE [Suspect]
     Active Substance: TIOTROPIUM BROMIDE
     Indication: Product used for unknown indication
     Dosage: 1 DOSAGE FORM, DAILY
     Route: 065
  186. CANDESARTAN [Suspect]
     Active Substance: CANDESARTAN
     Indication: Product used for unknown indication
     Dosage: 8 MG, DAILY (1 EVERY 1 DAYS) (WAS REPORTED 2 TIMES).
     Route: 048
  187. CANDESARTAN [Suspect]
     Active Substance: CANDESARTAN
     Dosage: UNK
     Route: 048
  188. DOMPERIDONE MALEATE [Suspect]
     Active Substance: DOMPERIDONE MALEATE
     Indication: Product used for unknown indication
     Dosage: UNK
     Route: 065
  189. PANTOPRAZOLE SODIUM [Suspect]
     Active Substance: PANTOPRAZOLE SODIUM
     Indication: Product used for unknown indication
     Dosage: UNK
     Route: 065
  190. PANTOPRAZOLE SODIUM [Suspect]
     Active Substance: PANTOPRAZOLE SODIUM
     Indication: Asthma
     Dosage: UNK
     Route: 065
  191. PANTOPRAZOLE SODIUM [Suspect]
     Active Substance: PANTOPRAZOLE SODIUM
     Indication: Immunisation
     Dosage: UNK
     Route: 065
  192. PANTOPRAZOLE SODIUM [Suspect]
     Active Substance: PANTOPRAZOLE SODIUM
     Dosage: UNK
     Route: 065
  193. PANTOPRAZOLE SODIUM [Suspect]
     Active Substance: PANTOPRAZOLE SODIUM
     Dosage: UNK
     Route: 065
  194. PANTOPRAZOLE SODIUM [Suspect]
     Active Substance: PANTOPRAZOLE SODIUM
     Dosage: 0.25 MILLIGRAM
     Route: 048
  195. PANTOPRAZOLE SODIUM [Suspect]
     Active Substance: PANTOPRAZOLE SODIUM
     Dosage: 0.5 MILLIGRAM
     Route: 048
  196. PANTOPRAZOLE SODIUM [Suspect]
     Active Substance: PANTOPRAZOLE SODIUM
     Dosage: 1 DOSAGE FORM, DAILY (1 EVERY 1 DAYS)
     Route: 065
  197. PANTOPRAZOLE SODIUM [Suspect]
     Active Substance: PANTOPRAZOLE SODIUM
     Dosage: 2 DOSAGE FORM, BID (2 EVERY 1 DAYS)
     Route: 065
  198. PANTOPRAZOLE SODIUM [Suspect]
     Active Substance: PANTOPRAZOLE SODIUM
     Dosage: 10 MILLIGRAM
     Route: 065
  199. PANTOPRAZOLE SODIUM [Suspect]
     Active Substance: PANTOPRAZOLE SODIUM
     Dosage: 75 MILLIGRAM
     Route: 048
  200. PANTOPRAZOLE SODIUM [Suspect]
     Active Substance: PANTOPRAZOLE SODIUM
     Dosage: 100 MILLIGRAM
     Route: 065
  201. PANTOPRAZOLE SODIUM [Suspect]
     Active Substance: PANTOPRAZOLE SODIUM
     Dosage: 10 MILLIGRAM, DAILY
     Route: 048
  202. PANTOPRAZOLE SODIUM [Suspect]
     Active Substance: PANTOPRAZOLE SODIUM
     Dosage: 100 MILLIGRAM, DAILY (1 EVERY 1 DAYS)
     Route: 065
  203. PANTOPRAZOLE SODIUM [Suspect]
     Active Substance: PANTOPRAZOLE SODIUM
     Dosage: 0.8 MILLIGRAM, DAILY
     Route: 065
  204. PANTOPRAZOLE SODIUM [Suspect]
     Active Substance: PANTOPRAZOLE SODIUM
     Dosage: 8 MILLIGRAM, DAILY (1 EVERY 1 DAYS)
     Route: 065
  205. PANTOPRAZOLE SODIUM [Suspect]
     Active Substance: PANTOPRAZOLE SODIUM
     Dosage: UNK
     Route: 065
  206. AZITHROMYCIN ANHYDROUS [Suspect]
     Active Substance: AZITHROMYCIN ANHYDROUS
     Indication: Product used for unknown indication
     Dosage: UNK
     Route: 065
  207. RANITIDINE HYDROCHLORIDE [Suspect]
     Active Substance: RANITIDINE HYDROCHLORIDE
     Indication: Product used for unknown indication
     Dosage: UNK
     Route: 065
  208. RANITIDINE HYDROCHLORIDE [Suspect]
     Active Substance: RANITIDINE HYDROCHLORIDE
     Indication: Gastrooesophageal reflux disease
     Dosage: UNK
     Route: 065
  209. RANITIDINE HYDROCHLORIDE [Suspect]
     Active Substance: RANITIDINE HYDROCHLORIDE
     Dosage: 8.6 MILLIGRAM
     Route: 065
  210. TIOTROPIUM BROMIDE MONOHYDRATE [Suspect]
     Active Substance: TIOTROPIUM BROMIDE MONOHYDRATE
     Indication: Product used for unknown indication
     Dosage: 1 DF, DAILY (1 EVERY 1 DAYS)
     Route: 065
  211. TRAZODONE [Suspect]
     Active Substance: TRAZODONE HYDROCHLORIDE
     Indication: Product used for unknown indication
     Dosage: 12.5 MG, UNK
     Route: 065
  212. TRAZODONE [Suspect]
     Active Substance: TRAZODONE HYDROCHLORIDE
     Dosage: 10 MG, UNK
     Route: 065
  213. TRAZODONE [Suspect]
     Active Substance: TRAZODONE HYDROCHLORIDE
     Dosage: 10 MG, UNK
     Route: 065
  214. TRAZODONE [Suspect]
     Active Substance: TRAZODONE HYDROCHLORIDE
     Dosage: 10 MG, UNK
     Route: 065
  215. TRAZODONE [Suspect]
     Active Substance: TRAZODONE HYDROCHLORIDE
     Dosage: 12.5 MG, UNK
     Route: 065
  216. TRAZODONE [Suspect]
     Active Substance: TRAZODONE HYDROCHLORIDE
     Dosage: 10 MG, UNK
     Route: 065
  217. TRAZODONE [Suspect]
     Active Substance: TRAZODONE HYDROCHLORIDE
     Dosage: 13 MILLIGRAM
     Route: 048
  218. TRAZODONE [Suspect]
     Active Substance: TRAZODONE HYDROCHLORIDE
     Dosage: 10 MG, UNK
     Route: 048
  219. TRAZODONE [Suspect]
     Active Substance: TRAZODONE HYDROCHLORIDE
     Dosage: 12.5 MG, UNK
     Route: 048
  220. TRAZODONE [Suspect]
     Active Substance: TRAZODONE HYDROCHLORIDE
     Dosage: 10 MG, (DOSAGE REGIMEN WAS REPORTED 2 TIMES)
     Route: 048
  221. PRAMIPEXOLE [Suspect]
     Active Substance: PRAMIPEXOLE\PRAMIPEXOLE DIHYDROCHLORIDE
     Indication: Product used for unknown indication
     Dosage: 0.5 MG, UNK
     Route: 048
  222. PRAMIPEXOLE [Suspect]
     Active Substance: PRAMIPEXOLE\PRAMIPEXOLE DIHYDROCHLORIDE
     Dosage: 0.25 MG, UNK
     Route: 048
  223. PRAMIPEXOLE [Suspect]
     Active Substance: PRAMIPEXOLE\PRAMIPEXOLE DIHYDROCHLORIDE
     Dosage: 0.25 MG, UNK
     Route: 048
  224. PRAMIPEXOLE [Suspect]
     Active Substance: PRAMIPEXOLE\PRAMIPEXOLE DIHYDROCHLORIDE
     Dosage: 0.5 MG, UNK
     Route: 048
  225. PRAMIPEXOLE [Suspect]
     Active Substance: PRAMIPEXOLE\PRAMIPEXOLE DIHYDROCHLORIDE
     Dosage: 0.25 MG, UNK
     Route: 048
  226. PRAMIPEXOLE [Suspect]
     Active Substance: PRAMIPEXOLE\PRAMIPEXOLE DIHYDROCHLORIDE
     Dosage: 0.5 MG, UNK
     Route: 048
  227. PRAMIPEXOLE [Suspect]
     Active Substance: PRAMIPEXOLE\PRAMIPEXOLE DIHYDROCHLORIDE
     Dosage: UNK (ORAL WAS REPORTED 3 TIMES)
     Route: 048
  228. PRAMIPEXOLE [Suspect]
     Active Substance: PRAMIPEXOLE\PRAMIPEXOLE DIHYDROCHLORIDE
     Dosage: UNK
     Route: 048
  229. MOMETASONE FUROATE [Suspect]
     Active Substance: MOMETASONE FUROATE
     Indication: Product used for unknown indication
     Dosage: UNK
     Route: 065
  230. MOMETASONE FUROATE [Suspect]
     Active Substance: MOMETASONE FUROATE
     Dosage: UNK
     Route: 065
  231. MORPHINE [Suspect]
     Active Substance: MORPHINE
     Indication: Product used for unknown indication
     Dosage: 10 MG, UNK
     Route: 065
  232. MORPHINE [Suspect]
     Active Substance: MORPHINE
     Dosage: UNK
     Route: 065
  233. MORPHINE [Suspect]
     Active Substance: MORPHINE
     Dosage: UNK
     Route: 065
  234. MORPHINE [Suspect]
     Active Substance: MORPHINE
     Dosage: UNK
     Route: 065
  235. MORPHINE [Suspect]
     Active Substance: MORPHINE
     Dosage: 10 MG, UNK
     Route: 065
  236. MORPHINE [Suspect]
     Active Substance: MORPHINE
     Dosage: 10 MG, UNK
     Route: 048
  237. MORPHINE [Suspect]
     Active Substance: MORPHINE
     Dosage: UNK
     Route: 065
  238. INFLUENZA VIRUS VACCINE [Suspect]
     Active Substance: INFLUENZA VIRUS VACCINE
     Indication: Prophylaxis
     Dosage: UNK
     Route: 065
  239. BISACODYL [Suspect]
     Active Substance: BISACODYL
     Indication: Product used for unknown indication
     Dosage: 8.6 MILLIGRAM
     Route: 065
  240. BISACODYL [Suspect]
     Active Substance: BISACODYL
     Dosage: UNK
     Route: 065
  241. LANSOPRAZOLE [Suspect]
     Active Substance: LANSOPRAZOLE
     Indication: Product used for unknown indication
     Dosage: UNK
     Route: 065
  242. ACETAMINOPHEN\CARBINOXAMINE MALEATE\PENTOXYVERINE CITRATE\PHENYLEPHRIN [Suspect]
     Active Substance: ACETAMINOPHEN\CARBINOXAMINE MALEATE\PENTOXYVERINE CITRATE\PHENYLEPHRINE HYDROCHLORIDE
     Indication: Prophylaxis
     Dosage: UNK
     Route: 065
  243. PREVACID [Suspect]
     Active Substance: LANSOPRAZOLE
     Indication: Product used for unknown indication
     Dosage: UNK
     Route: 065
  244. PREVACID [Suspect]
     Active Substance: LANSOPRAZOLE
     Dosage: UNK
     Route: 048
  245. PREVACID [Suspect]
     Active Substance: LANSOPRAZOLE
     Indication: Product used for unknown indication
     Dosage: UNK
     Route: 065
  246. PREVACID [Suspect]
     Active Substance: LANSOPRAZOLE
     Dosage: UNK
     Route: 048
  247. PYRILAMINE MALEATE [Suspect]
     Active Substance: PYRILAMINE MALEATE
     Indication: Product used for unknown indication
     Dosage: 10 MILLIGRAM
     Route: 048
  248. PYRILAMINE MALEATE [Suspect]
     Active Substance: PYRILAMINE MALEATE
     Dosage: UNK
     Route: 065
  249. PYRILAMINE MALEATE [Suspect]
     Active Substance: PYRILAMINE MALEATE
     Dosage: 10 MILLIGRAM
     Route: 065
  250. PYRILAMINE MALEATE [Suspect]
     Active Substance: PYRILAMINE MALEATE
     Dosage: UNK (DOSAGE REGIMEN WAS REPORTED 3 TIMES)
     Route: 065
  251. VENTOLIN [Suspect]
     Active Substance: ALBUTEROL SULFATE
     Indication: Asthma
     Dosage: 100 MCG
     Route: 065
  252. VENTOLIN [Suspect]
     Active Substance: ALBUTEROL SULFATE
     Dosage: UNK
  253. INFLUENZA VIRUS VACCINE [Suspect]
     Active Substance: INFLUENZA VIRUS VACCINE
     Indication: Product used for unknown indication
     Dosage: UNK
     Route: 065
  254. JUBLIA [Suspect]
     Active Substance: EFINACONAZOLE
     Indication: Product used for unknown indication
     Dosage: UNK
     Route: 065
  255. JUBLIA [Suspect]
     Active Substance: EFINACONAZOLE
     Dosage: 10 PERCENT
     Route: 061
  256. JUBLIA [Suspect]
     Active Substance: EFINACONAZOLE
     Dosage: UNK
     Route: 061
  257. PNEUMOCOCCAL VACCINE, POLYVALENT 23 [Suspect]
     Active Substance: PNEUMOCOCCAL VACCINE, POLYVALENT 23
     Indication: Immunisation
     Route: 065
  258. PNEUMOCOCCAL VACCINE POLYVALENT NOS [Suspect]
     Active Substance: PNEUMOCOCCAL VACCINE, POLYVALENT
     Indication: Immunisation
     Dosage: UNK
     Route: 065
  259. FLUMIST QUADRIVALENT [Suspect]
     Active Substance: INFLUENZA A VIRUS A/CALIFORNIA/7/2009 (H1N1) LIVE(ATTENUATED) ANTIGEN\INFLUENZA A VIRUS A/TEXAS/50/2
     Indication: Immunisation
     Dosage: UNK
     Route: 065
  260. PANTOPRAZOLE SODIUM [Suspect]
     Active Substance: PANTOPRAZOLE SODIUM
     Indication: Asthma
     Dosage: UNK
     Route: 065
  261. PANTOPRAZOLE SODIUM [Suspect]
     Active Substance: PANTOPRAZOLE SODIUM
     Indication: Immunisation
     Dosage: UNK
     Route: 065
  262. PANTOPRAZOLE SODIUM [Suspect]
     Active Substance: PANTOPRAZOLE SODIUM
     Dosage: 10 MILLIGRAM
     Route: 048
  263. PANTOPRAZOLE SODIUM [Suspect]
     Active Substance: PANTOPRAZOLE SODIUM
     Dosage: 100 MILLIGRAM
     Route: 065
  264. PANTOPRAZOLE SODIUM [Suspect]
     Active Substance: PANTOPRAZOLE SODIUM
     Dosage: 0.5 MILLIGRAM
     Route: 048
  265. PANTOPRAZOLE SODIUM [Suspect]
     Active Substance: PANTOPRAZOLE SODIUM
     Dosage: UNK, DAILY [NK, DAILY (1 EVERY 1 DAYS)]
     Route: 065
  266. PANTOPRAZOLE SODIUM [Suspect]
     Active Substance: PANTOPRAZOLE SODIUM
     Dosage: 10 MILLIGRAM
     Route: 065
  267. PANTOPRAZOLE SODIUM [Suspect]
     Active Substance: PANTOPRAZOLE SODIUM
     Dosage: 08 MILLIGRAM
     Route: 048
  268. PANTOPRAZOLE SODIUM [Suspect]
     Active Substance: PANTOPRAZOLE SODIUM
     Dosage: 8 MILLIGRAM, DAILY (1 EVERY 1 DAYS)
     Route: 065
  269. PANTOPRAZOLE SODIUM [Suspect]
     Active Substance: PANTOPRAZOLE SODIUM
     Dosage: 75 MILLIGRAM
     Route: 048
  270. PANTOPRAZOLE SODIUM [Suspect]
     Active Substance: PANTOPRAZOLE SODIUM
     Dosage: 0.25 MILLIGRAM
     Route: 048
  271. PANTOPRAZOLE SODIUM [Suspect]
     Active Substance: PANTOPRAZOLE SODIUM
     Dosage: 1 MILLIGRAM
     Route: 048
  272. PANTOPRAZOLE SODIUM [Suspect]
     Active Substance: PANTOPRAZOLE SODIUM
     Dosage: 10 MILLIGRAM, DAILY (1 EVERY 1 DAYS)
     Route: 048
  273. PANTOPRAZOLE SODIUM [Suspect]
     Active Substance: PANTOPRAZOLE SODIUM
     Dosage: 10 MILLIGRAM, DAILY (1 EVERY 1 DAYS)
     Route: 065
  274. PANTOPRAZOLE SODIUM [Suspect]
     Active Substance: PANTOPRAZOLE SODIUM
     Dosage: UNK, BID
     Route: 065
  275. PANTOPRAZOLE SODIUM [Suspect]
     Active Substance: PANTOPRAZOLE SODIUM
     Dosage: 2 DOSAGE FORM, DAILY (DOSAGE REGIMEN DAILY WAS REPORTED 2 TIMES)
     Route: 065
  276. PANTOPRAZOLE SODIUM [Suspect]
     Active Substance: PANTOPRAZOLE SODIUM
     Dosage: 1 DOSAGE FORM (DOSAGE REGIMEN WAS REPORTED 2 TIMES)
     Route: 065
  277. CHOLECALCIFEROL [Suspect]
     Active Substance: CHOLECALCIFEROL
     Indication: Product used for unknown indication
     Dosage: UNK
     Route: 048
  278. ALBUTEROL\IPRATROPIUM [Suspect]
     Active Substance: ALBUTEROL\IPRATROPIUM
     Indication: Product used for unknown indication
     Dosage: UNK
     Route: 065
  279. DEXILANT [Suspect]
     Active Substance: DEXLANSOPRAZOLE
     Indication: Product used for unknown indication
     Dosage: UNK
     Route: 065
  280. DEXILANT [Suspect]
     Active Substance: DEXLANSOPRAZOLE
     Indication: Gastrooesophageal reflux disease
  281. FORMOTEROL FUMARATE [Suspect]
     Active Substance: FORMOTEROL FUMARATE
     Indication: Asthma
     Dosage: 2 DOSAGE FORM 1 EVERY 2 DAYS
     Route: 065
  282. FORMOTEROL FUMARATE [Suspect]
     Active Substance: FORMOTEROL FUMARATE
     Dosage: 2 DOSAGE FORM
     Route: 065
  283. FORMOTEROL FUMARATE [Suspect]
     Active Substance: FORMOTEROL FUMARATE
     Dosage: UNK
     Route: 065
  284. PREGABALIN [Suspect]
     Active Substance: PREGABALIN
     Indication: Product used for unknown indication
     Dosage: 75 MILLIGRAM
     Route: 048
  285. PREGABALIN [Suspect]
     Active Substance: PREGABALIN
     Dosage: UNK
     Route: 048

REACTIONS (42)
  - Drug ineffective [Not Recovered/Not Resolved]
  - Abdominal pain upper [Not Recovered/Not Resolved]
  - Anaemia [Not Recovered/Not Resolved]
  - Aspiration [Not Recovered/Not Resolved]
  - Asthenia [Not Recovered/Not Resolved]
  - Asthma [Not Recovered/Not Resolved]
  - Blood calcium increased [Not Recovered/Not Resolved]
  - Blood creatinine increased [Not Recovered/Not Resolved]
  - Blood test abnormal [Not Recovered/Not Resolved]
  - Bronchiectasis [Not Recovered/Not Resolved]
  - Bronchopulmonary aspergillosis allergic [Not Recovered/Not Resolved]
  - Constipation [Not Recovered/Not Resolved]
  - Cough [Not Recovered/Not Resolved]
  - Drug hypersensitivity [Not Recovered/Not Resolved]
  - Dyspnoea [Not Recovered/Not Resolved]
  - Fatigue [Not Recovered/Not Resolved]
  - Gastrooesophageal reflux disease [Not Recovered/Not Resolved]
  - General physical health deterioration [Not Recovered/Not Resolved]
  - Haemoptysis [Not Recovered/Not Resolved]
  - Headache [Not Recovered/Not Resolved]
  - Hypoxia [Not Recovered/Not Resolved]
  - Liver function test increased [Not Recovered/Not Resolved]
  - Lower respiratory tract infection [Not Recovered/Not Resolved]
  - Lung opacity [Not Recovered/Not Resolved]
  - Musculoskeletal stiffness [Not Recovered/Not Resolved]
  - Obstructive airways disorder [Not Recovered/Not Resolved]
  - Oedema peripheral [Not Recovered/Not Resolved]
  - Pain [Not Recovered/Not Resolved]
  - Pleural effusion [Not Recovered/Not Resolved]
  - Pneumonia [Not Recovered/Not Resolved]
  - Product dose omission issue [Not Recovered/Not Resolved]
  - Pulmonary fibrosis [Not Recovered/Not Resolved]
  - Pulmonary mass [Not Recovered/Not Resolved]
  - Pyrexia [Not Recovered/Not Resolved]
  - Rales [Not Recovered/Not Resolved]
  - Sputum discoloured [Not Recovered/Not Resolved]
  - Total lung capacity decreased [Not Recovered/Not Resolved]
  - Transaminases increased [Not Recovered/Not Resolved]
  - Tremor [Not Recovered/Not Resolved]
  - Upper respiratory tract infection [Not Recovered/Not Resolved]
  - Wheezing [Not Recovered/Not Resolved]
  - Pleuritic pain [Unknown]
